FAERS Safety Report 8490871-4 (Version None)
Quarter: 2012Q2

REPORT INFORMATION
  Report Type: 
  Country: None (occurrence: None)
  Receive Date: 20120629
  Receipt Date: 20120629
  Transmission Date: 20120825
  Serious: Yes (Other)
  Sender: FDA-Public Use
  Company Number: None

PATIENT
  Age: 26 Year
  Sex: Female
  Weight: 52.1637 kg

DRUGS (2)
  1. DIPHENHYDRAMINE HCL [Suspect]
     Indication: MIGRAINE
     Dosage: 100MG (2ML) 2-3/WK IM
     Route: 030
     Dates: start: 20120530
  2. DIPHENHYDRAMINE HCL [Suspect]
     Indication: MIGRAINE
     Dosage: 100MG (2ML) 2-3/WK IM
     Route: 030
     Dates: start: 20120529

REACTIONS (5)
  - NAUSEA [None]
  - PRODUCT CONTAMINATION [None]
  - HEADACHE [None]
  - SKIN WARM [None]
  - OEDEMA PERIPHERAL [None]
